FAERS Safety Report 18473902 (Version 2)
Quarter: 2020Q4

REPORT INFORMATION
  Report Type: Spontaneous
  Country: JP (occurrence: JP)
  Receive Date: 20201106
  Receipt Date: 20201123
  Transmission Date: 20210114
  Serious: Yes (Other)
  Sender: FDA-Public Use
  Company Number: JP-CHEPLA-C20203207

PATIENT
  Age: 84 Year
  Sex: Male

DRUGS (1)
  1. DENOSINE (GANCICLOVIR) [Suspect]
     Active Substance: GANCICLOVIR
     Indication: CYTOMEGALOVIRUS INFECTION
     Dosage: 80 MG, QD (ONCE A DAY)
     Route: 041
     Dates: start: 20201019, end: 20201026

REACTIONS (2)
  - Blood creatine phosphokinase increased [Recovered/Resolved]
  - Liver function test increased [Recovering/Resolving]
